FAERS Safety Report 8778286 (Version 3)
Quarter: 2012Q4

REPORT INFORMATION
  Report Type: 
  Country: JP (occurrence: JP)
  Receive Date: 20120912
  Receipt Date: 20120919
  Transmission Date: 20130627
  Serious: Yes (Other)
  Sender: FDA-Public Use
  Company Number: JP-TEVA-358683USA

PATIENT
  Age: 54 Year
  Sex: Female

DRUGS (4)
  1. TREANDA [Suspect]
     Indication: B-CELL LYMPHOMA
     Route: 042
     Dates: start: 20110411
  2. TREANDA [Suspect]
     Route: 042
     Dates: start: 20110503
  3. TREANDA [Suspect]
     Route: 042
     Dates: start: 20110829
  4. RITUXIMAB [Suspect]
     Indication: B-CELL LYMPHOMA

REACTIONS (1)
  - Hepatitis B [Unknown]
